FAERS Safety Report 25105894 (Version 1)
Quarter: 2025Q1

REPORT INFORMATION
  Report Type: Spontaneous
  Country: US (occurrence: US)
  Receive Date: 20250321
  Receipt Date: 20250321
  Transmission Date: 20250408
  Serious: No
  Sender: ABBVIE
  Company Number: US-ABBVIE-6180428

PATIENT

DRUGS (1)
  1. SKYRIZI [Suspect]
     Active Substance: RISANKIZUMAB-RZAA
     Indication: Psoriasis
     Dosage: UNKNOWN
     Route: 058
     Dates: start: 20250220

REACTIONS (6)
  - Cough [Unknown]
  - Headache [Unknown]
  - Gait inability [Unknown]
  - Fatigue [Unknown]
  - Asthma [Unknown]
  - Vomiting [Unknown]

NARRATIVE: CASE EVENT DATE: 20250221
